FAERS Safety Report 25889308 (Version 1)
Quarter: 2025Q4

REPORT INFORMATION
  Report Type: Spontaneous
  Country: GB (occurrence: GB)
  Receive Date: 20251007
  Receipt Date: 20251007
  Transmission Date: 20260118
  Serious: Yes (Other)
  Sender: UNICHEM
  Company Number: GB-UNICHEM LABORATORIES LIMITED-UNI-2025-GB-003439

PATIENT

DRUGS (1)
  1. BISOPROLOL [Suspect]
     Active Substance: BISOPROLOL
     Indication: Hypertrophic cardiomyopathy
     Dosage: 2.5 MILLIGRAM, QD
     Route: 065

REACTIONS (2)
  - Cardiac arrest [Unknown]
  - Atrioventricular block second degree [Unknown]
